FAERS Safety Report 5699633-4 (Version None)
Quarter: 2008Q2

REPORT INFORMATION
  Report Type: 
  Country: None (occurrence: None)
  Receive Date: 20080410
  Receipt Date: 20080401
  Transmission Date: 20081010
  Serious: Yes (Other)
  Sender: FDA-Public Use
  Company Number: PHHY2008JP04577

PATIENT

DRUGS (2)
  1. ANTIDIABETICS [Concomitant]
  2. DIOVAN [Suspect]
     Route: 048

REACTIONS (1)
  - HYPOGLYCAEMIA [None]
